FAERS Safety Report 21452156 (Version 1)
Quarter: 2022Q4

REPORT INFORMATION
  Report Type: Report from Study
  Country: MX (occurrence: MX)
  Receive Date: 20221013
  Receipt Date: 20221013
  Transmission Date: 20230113
  Serious: Yes (Other)
  Sender: FDA-Public Use
  Company Number: MX-NOVARTISPH-NVSC2022MX230695

PATIENT
  Sex: Female

DRUGS (2)
  1. ACLASTA [Suspect]
     Active Substance: ZOLEDRONIC ACID
     Indication: Osteopenia
     Dosage: UNK
     Route: 042
  2. ACLASTA [Suspect]
     Active Substance: ZOLEDRONIC ACID
     Indication: Osteoporosis prophylaxis
     Dosage: 1 DOSAGE FORM, Q12MO (5 MG DILUTED IN 100 ML OF SERUM)
     Route: 042
     Dates: start: 20211013

REACTIONS (4)
  - Intervertebral disc protrusion [Recovering/Resolving]
  - Bone demineralisation [Recovering/Resolving]
  - Sensitisation [Recovering/Resolving]
  - Wrong technique in product usage process [Recovering/Resolving]
